FAERS Safety Report 5305603-8 (Version None)
Quarter: 2007Q2

REPORT INFORMATION
  Report Type: 
  Country: None (occurrence: None)
  Receive Date: 20070419
  Receipt Date: 20070419
  Transmission Date: 20071010
  Serious: Yes (Life-Threatening, Other)
  Sender: FDA-Public Use
  Company Number: None

PATIENT
  Age: 17 Year
  Sex: Female
  Weight: 56.6996 kg

DRUGS (1)
  1. APIDRA [Suspect]
     Indication: DIABETES MELLITUS INSULIN-DEPENDENT
     Dosage: SLIDING SCALE -    3-4 TIMES DAILY  SQ
     Route: 058
     Dates: start: 20061220, end: 20070118

REACTIONS (2)
  - HYPOGLYCAEMIC SEIZURE [None]
  - LOSS OF CONSCIOUSNESS [None]
